FAERS Safety Report 4609578-6 (Version None)
Quarter: 2005Q1

REPORT INFORMATION
  Report Type: 
  Country: None (occurrence: None)
  Receive Date: 20050314
  Receipt Date: 20050314
  Transmission Date: 20050727
  Serious: Yes (Other)
  Sender: FDA-Public Use
  Company Number: None

PATIENT
  Sex: Male
  Weight: 61.2 kg

DRUGS (5)
  1. INTERFERON ALPHA [Suspect]
     Dosage: 9.0 MU SC 3X WEEK CYCLE = 4 WEEKS
     Route: 058
     Dates: start: 20050120
  2. ENDOCIN [Concomitant]
  3. PERCOCET [Concomitant]
  4. PREVACID [Concomitant]
  5. SENOKOT [Concomitant]

REACTIONS (4)
  - BLOOD ALBUMIN INCREASED [None]
  - BLOOD CALCIUM INCREASED [None]
  - CONFUSIONAL STATE [None]
  - RECTAL HAEMORRHAGE [None]
